FAERS Safety Report 24081351 (Version 1)
Quarter: 2024Q3

REPORT INFORMATION
  Report Type: Report from Study
  Country: PK (occurrence: PK)
  Receive Date: 20240711
  Receipt Date: 20240711
  Transmission Date: 20241017
  Serious: Yes (Death)
  Sender: ROCHE
  Company Number: PK-ROCHE-RCA5137690

PATIENT
  Age: 57 Year
  Sex: Male

DRUGS (1)
  1. MABTHERA [Suspect]
     Active Substance: RITUXIMAB
     Indication: Follicular lymphoma
     Dosage: NO
     Route: 058
     Dates: start: 20231219

REACTIONS (1)
  - Death [Fatal]

NARRATIVE: CASE EVENT DATE: 20240605
